FAERS Safety Report 6557403-9 (Version None)
Quarter: 2010Q1

REPORT INFORMATION
  Report Type: 
  Country: None (occurrence: None)
  Receive Date: 20100129
  Receipt Date: 20100126
  Transmission Date: 20100710
  Serious: Yes (Death, Other)
  Sender: FDA-Public Use
  Company Number: PHHY2010FR01818

PATIENT
  Sex: Male

DRUGS (13)
  1. ACLASTA [Suspect]
     Indication: OSTEOPOROSIS
     Dosage: 5 MG/YEAR
     Route: 042
     Dates: start: 20100106
  2. APROVEL [Concomitant]
     Dosage: 1 DF DAILY
  3. LASILIX [Concomitant]
     Dosage: 1 DFDAILY
  4. PLAVIX [Concomitant]
  5. CRESTOR [Concomitant]
     Dosage: 1 DF DAILY
  6. DIAMICRON [Concomitant]
     Dosage: 3 DF DAILY
  7. OMEPRAZOLE [Concomitant]
     Dosage: 1 DF DAILY
  8. IDEOS [Concomitant]
     Dosage: 2 DF DAILY
  9. DISCOTRINE [Concomitant]
     Dosage: 1 DF DAILY
  10. PARACETAMOL [Concomitant]
     Dosage: 4 DF DAILY
  11. OROCAL D3 [Concomitant]
     Dosage: 2 DF DAILY
  12. METFORMIN HCL [Concomitant]
     Dosage: 3 DF DAILY
  13. OXYCONTIN [Concomitant]
     Dosage: 2 DF DAILY

REACTIONS (7)
  - ABDOMINAL PAIN [None]
  - ARRHYTHMIA [None]
  - DEATH [None]
  - HYPERKALAEMIA [None]
  - HYPOTENSION [None]
  - INTESTINAL INFARCTION [None]
  - RENAL FAILURE [None]
